FAERS Safety Report 15742841 (Version 1)
Quarter: 2018Q4

REPORT INFORMATION
  Report Type: Spontaneous
  Country: US (occurrence: US)
  Receive Date: 20181219
  Receipt Date: 20181219
  Transmission Date: 20190205
  Serious: No
  Sender: FDA-Public Use
  Company Number: US-UNICHEM PHARMACEUTICALS (USA) INC-UCM201712-000309

PATIENT
  Age: 66 Year
  Sex: Male
  Weight: 177.8 kg

DRUGS (3)
  1. RANITIDINE. [Concomitant]
     Active Substance: RANITIDINE
     Indication: GASTROOESOPHAGEAL REFLUX DISEASE
  2. TIZANIDINE. [Suspect]
     Active Substance: TIZANIDINE
     Indication: MUSCLE RELAXANT THERAPY
  3. ALLEGRA/ BENADRYL [Concomitant]
     Indication: HYPERSENSITIVITY

REACTIONS (4)
  - Asthenia [Recovered/Resolved]
  - Dizziness [Unknown]
  - Blood pressure decreased [Recovered/Resolved]
  - Syncope [Recovered/Resolved]
